FAERS Safety Report 9230066 (Version 1)
Quarter: 2013Q2

REPORT INFORMATION
  Report Type: Spontaneous
  Country: US (occurrence: None)
  Receive Date: 20130412
  Receipt Date: 20130412
  Transmission Date: 20140414
  Serious: Yes (Hospitalization)
  Sender: FDA-Public Use
  Company Number: None

PATIENT
  Age: 63 Year
  Sex: Male
  Weight: 88.45 kg

DRUGS (10)
  1. YERVOY [Suspect]
     Indication: MALIGNANT MELANOMA
     Dosage: Q 3 WEEKS  IV
     Route: 042
     Dates: start: 20120927, end: 20121018
  2. ZELBORAF [Concomitant]
  3. CARB/LEVO [Concomitant]
  4. WELBUTRIN XL [Concomitant]
  5. PRAMIPEXOLE [Concomitant]
  6. NUVIGIL [Concomitant]
  7. LUNESTA [Concomitant]
  8. LORAZEPAM [Concomitant]
  9. MULTI VIT [Concomitant]
  10. CALCIUM [Concomitant]

REACTIONS (3)
  - Colitis [None]
  - Weight decreased [None]
  - Enema administration [None]
